FAERS Safety Report 6391458-X (Version None)
Quarter: 2009Q4

REPORT INFORMATION
  Report Type: 
  Country: None (occurrence: None)
  Receive Date: 20091007
  Receipt Date: 20091002
  Transmission Date: 20100525
  Serious: Yes (Hospitalization)
  Sender: FDA-Public Use
  Company Number: IT-BRISTOL-MYERS SQUIBB COMPANY-14803696

PATIENT
  Age: 78 Year
  Sex: Male

DRUGS (2)
  1. KARVEA TABS 300 MG [Suspect]
     Indication: HYPERTENSION
     Route: 048
     Dates: start: 20050101, end: 20090813
  2. CARDURA [Suspect]
     Indication: HYPERTENSION
     Dosage: 4 MG TABS
     Route: 048
     Dates: start: 20050101, end: 20090813

REACTIONS (2)
  - ECCHYMOSIS [None]
  - THROMBOCYTOPENIA [None]
